FAERS Safety Report 5005755-3 (Version None)
Quarter: 2006Q2

REPORT INFORMATION
  Report Type: 
  Country: None (occurrence: None)
  Receive Date: 20060517
  Receipt Date: 20060517
  Transmission Date: 20061013
  Serious: Yes (Other)
  Sender: FDA-Public Use
  Company Number: None

PATIENT
  Age: 73 Year
  Sex: Male

DRUGS (2)
  1. LISINOPRIL AND HYDROCHLOROTHIAZIDE [Suspect]
     Indication: HYPERTENSION
     Dosage: 1 TAB  DAILY  ORAL
     Route: 048
     Dates: start: 20060414
  2. ATENOLOL [Suspect]
     Indication: HYPERTENSION
     Dosage: 1 TAB  DAILY  ORAL
     Route: 048

REACTIONS (2)
  - BLOOD PRESSURE DIASTOLIC DECREASED [None]
  - BLOOD PRESSURE SYSTOLIC INCREASED [None]
